FAERS Safety Report 10589500 (Version 1)
Quarter: 2014Q4

REPORT INFORMATION
  Report Type: Report from Study
  Country: US (occurrence: US)
  Receive Date: 20141118
  Receipt Date: 20141118
  Transmission Date: 20150529
  Serious: Yes (Hospitalization)
  Sender: FDA-Public Use
  Company Number: US-AMGEN-USACT2014088109

PATIENT
  Age: 63 Year
  Sex: Male
  Weight: 69 kg

DRUGS (11)
  1. SERTRALINE [Concomitant]
     Active Substance: SERTRALINE HYDROCHLORIDE
  2. LOVENOX [Concomitant]
     Active Substance: ENOXAPARIN SODIUM
     Dosage: UNK
     Dates: start: 201404
  3. PANITUMUMAB [Suspect]
     Active Substance: PANITUMUMAB
     Indication: COLORECTAL CANCER METASTATIC
     Dosage: 390 MG, Q2WK
     Route: 042
     Dates: start: 20141008
  4. OXYCODON [Concomitant]
     Active Substance: OXYCODONE
  5. ENOXAPARIN [Concomitant]
     Active Substance: ENOXAPARIN
  6. FLOMAX [Concomitant]
     Active Substance: TAMSULOSIN HYDROCHLORIDE
  7. 5-FU                               /00098801/ [Concomitant]
     Active Substance: FLUOROURACIL
     Indication: COLORECTAL CANCER METASTATIC
     Dosage: 650 MG, Q2WK
     Route: 042
     Dates: start: 20141008
  8. LISINOPRIL. [Concomitant]
     Active Substance: LISINOPRIL
  9. ZYRTEC [Concomitant]
     Active Substance: CETIRIZINE HYDROCHLORIDE
  10. MINOCYCLINE [Concomitant]
     Active Substance: MINOCYCLINE\MINOCYCLINE HYDROCHLORIDE
  11. 5-FU                               /00098801/ [Concomitant]
     Active Substance: FLUOROURACIL
     Dosage: 3950 MG, Q2WK
     Route: 040
     Dates: start: 20141008

REACTIONS (1)
  - Fall [Unknown]

NARRATIVE: CASE EVENT DATE: 20141108
